FAERS Safety Report 9346346 (Version 1)
Quarter: 2013Q2

REPORT INFORMATION
  Report Type: Report from Study
  Country: US (occurrence: US)
  Receive Date: 20130613
  Receipt Date: 20130613
  Transmission Date: 20140414
  Serious: Yes (Hospitalization)
  Sender: FDA-Public Use
  Company Number: US-ROCHE-1233745

PATIENT
  Age: 68 Year
  Sex: Female

DRUGS (4)
  1. VEMURAFENIB [Suspect]
     Indication: MALIGNANT MELANOMA
     Route: 065
  2. CYCLOPHOSPHAMIDE [Concomitant]
     Route: 065
     Dates: start: 20130506
  3. IL-2 [Concomitant]
  4. FLUDARABINE [Concomitant]

REACTIONS (1)
  - Generalised oedema [Recovered/Resolved]
